FAERS Safety Report 9179545 (Version 1)
Quarter: 2012Q4

REPORT INFORMATION
  Report Type: 
  Country: US (occurrence: US)
  Receive Date: 20121029
  Receipt Date: 20121029
  Transmission Date: 20130627
  Serious: Yes (Other)
  Sender: FDA-Public Use
  Company Number: US-MYLANLABS-2012S1014407

PATIENT
  Age: 69 Year
  Sex: Male
  Weight: 90.72 kg

DRUGS (3)
  1. TAMSULOSIN HYDROCHLORIDE [Suspect]
     Indication: BENIGN PROSTATIC HYPERPLASIA
     Dates: start: 20120711, end: 20120713
  2. LOSARTAN/HYDROCHLOROTHIAZIDE TABLETS [Concomitant]
     Indication: BLOOD PRESSURE INCREASED
     Dosage: 100mg/125mg
  3. GLIMEPIRIDE [Concomitant]
     Indication: DIABETES MELLITUS

REACTIONS (4)
  - Dizziness [Recovered/Resolved]
  - Somnolence [Recovered/Resolved]
  - Asthenia [Recovering/Resolving]
  - Nausea [Recovered/Resolved]
